FAERS Safety Report 18100475 (Version 1)
Quarter: 2020Q3

REPORT INFORMATION
  Report Type: Spontaneous
  Country: JP (occurrence: JP)
  Receive Date: 20200731
  Receipt Date: 20200731
  Transmission Date: 20201103
  Serious: Yes (Hospitalization, Other)
  Sender: FDA-Public Use
  Company Number: JP-JNJFOC-20200622529

PATIENT
  Age: 67 Year
  Sex: Male
  Weight: 74 kg

DRUGS (7)
  1. XARELTO [Suspect]
     Active Substance: RIVAROXABAN
     Dosage: DAILY DOSE 15 MG
     Route: 048
     Dates: start: 20200611
  2. FOLIAMIN [Concomitant]
     Active Substance: FOLIC ACID
     Indication: RHEUMATOID ARTHRITIS
     Dosage: DAILY DOSE 5 MG, ONCE A WEEK
     Route: 048
     Dates: start: 20200518
  3. AMLODIPINE [Concomitant]
     Active Substance: AMLODIPINE BESYLATE
     Indication: HYPERTENSION
     Dosage: DAILY DOSE 5 MG
     Route: 048
     Dates: start: 20200518
  4. METHOTREXATE. [Concomitant]
     Active Substance: METHOTREXATE
     Indication: RHEUMATOID ARTHRITIS
     Dosage: DAILY DOSE 18 MG, ONCE A WEEK
     Route: 048
     Dates: start: 20200518
  5. ALENDRONATE [Concomitant]
     Active Substance: ALENDRONATE SODIUM
     Indication: RHEUMATOID ARTHRITIS
     Dosage: ONCE A WEEK
     Route: 048
     Dates: start: 20200518
  6. XARELTO [Suspect]
     Active Substance: RIVAROXABAN
     Indication: DEEP VEIN THROMBOSIS
     Dosage: DAILY DOSE 30 MG
     Route: 048
     Dates: start: 20200521, end: 20200610
  7. XARELTO [Suspect]
     Active Substance: RIVAROXABAN
     Indication: PULMONARY EMBOLISM
     Dosage: DAILY DOSE 30 MG
     Route: 048
     Dates: start: 20200518, end: 20200518

REACTIONS (5)
  - Melaena [Recovering/Resolving]
  - Colon cancer [Unknown]
  - Gastrointestinal haemorrhage [Recovering/Resolving]
  - Haematochezia [Recovering/Resolving]
  - Rectal cancer [Unknown]

NARRATIVE: CASE EVENT DATE: 20200518
